FAERS Safety Report 16360283 (Version 1)
Quarter: 2019Q2

REPORT INFORMATION
  Report Type: Spontaneous
  Country: CZ (occurrence: CZ)
  Receive Date: 20190528
  Receipt Date: 20190528
  Transmission Date: 20190711
  Serious: Yes (Death, Life-Threatening, Hospitalization, Other)
  Sender: FDA-Public Use
  Company Number: CZ-ORION CORPORATION ORION PHARMA-19_00006234

PATIENT
  Age: 75 Year
  Sex: Male

DRUGS (1)
  1. TREXAN [Suspect]
     Active Substance: METHOTREXATE SODIUM
     Indication: PRODUCT USED FOR UNKNOWN INDICATION
     Dosage: THE DOSAGE: 1-0-1, EVERY DAY (TOTAL DOSE DURING HOSPITALISATION 22.5 MG); STRENGTH: 2.5 MG
     Route: 065
     Dates: start: 20150906, end: 20150910

REACTIONS (6)
  - Bone marrow failure [Fatal]
  - Accidental overdose [Fatal]
  - Medication error [Fatal]
  - Multiple organ dysfunction syndrome [Fatal]
  - Sepsis [Fatal]
  - Cholecystitis [Fatal]

NARRATIVE: CASE EVENT DATE: 20150906
